FAERS Safety Report 14754838 (Version 2)
Quarter: 2018Q2

REPORT INFORMATION
  Report Type: Spontaneous
  Country: US (occurrence: US)
  Receive Date: 20180413
  Receipt Date: 20180413
  Transmission Date: 20180711
  Serious: Yes (Other)
  Sender: FDA-Public Use
  Company Number: US-CONCORDIA PHARMACEUTICALS INC.-GSH201804-001127

PATIENT
  Sex: Female

DRUGS (7)
  1. HUMIRA [Suspect]
     Active Substance: ADALIMUMAB
  2. VIOXX [Suspect]
     Active Substance: ROFECOXIB
  3. ISONIAZID. [Suspect]
     Active Substance: ISONIAZID
  4. CELEBREX [Suspect]
     Active Substance: CELECOXIB
  5. CODEINE [Suspect]
     Active Substance: CODEINE
  6. ENBREL [Suspect]
     Active Substance: ETANERCEPT
  7. PLAQUENIL [Suspect]
     Active Substance: HYDROXYCHLOROQUINE SULFATE

REACTIONS (1)
  - Drug hypersensitivity [Unknown]
